FAERS Safety Report 7919109-0 (Version None)
Quarter: 2011Q4

REPORT INFORMATION
  Report Type: 
  Country: None (occurrence: None)
  Receive Date: 20111116
  Receipt Date: 20110929
  Transmission Date: 20120403
  Serious: Yes (Other)
  Sender: FDA-Public Use
  Company Number: PHHY2011TW76317

PATIENT

DRUGS (1)
  1. GLEEVEC [Suspect]
     Dosage: 05 PILLS

REACTIONS (2)
  - POLYMERASE CHAIN REACTION [None]
  - DEPRESSED MOOD [None]
